FAERS Safety Report 22246397 (Version 1)
Quarter: 2023Q2

REPORT INFORMATION
  Report Type: Spontaneous
  Country: None (occurrence: FR)
  Receive Date: 20230424
  Receipt Date: 20230424
  Transmission Date: 20230721
  Serious: Yes (Hospitalization)
  Sender: FDA-Public Use
  Company Number: FR-AFSSAPS-AVMA2023000102

PATIENT
  Age: 37 Year
  Sex: Male

DRUGS (2)
  1. NITROUS OXIDE [Suspect]
     Active Substance: NITROUS OXIDE
     Indication: Product used for unknown indication
  2. COCAINE [Concomitant]
     Active Substance: COCAINE

REACTIONS (2)
  - Quadriparesis [Not Recovered/Not Resolved]
  - Myelitis [Not Recovered/Not Resolved]
